FAERS Safety Report 6758407-3 (Version None)
Quarter: 2010Q2

REPORT INFORMATION
  Report Type: 
  Country: None (occurrence: None)
  Receive Date: 20100603
  Receipt Date: 20100518
  Transmission Date: 20101027
  Serious: Yes (Disabling)
  Sender: FDA-Public Use
  Company Number: 592274

PATIENT
  Sex: Male

DRUGS (2)
  1. BUPIVACAINE HCL [Suspect]
     Indication: ANAESTHESIA
     Dosage: ^CONTINOUSLY INJECTED VIA PAIN PUMP^
  2. MORPHINE SULFATE [Concomitant]

REACTIONS (3)
  - ARTHRALGIA [None]
  - ARTHROPATHY [None]
  - OFF LABEL USE [None]
